FAERS Safety Report 8564290-6 (Version None)
Quarter: 2012Q3

REPORT INFORMATION
  Report Type: 
  Country: None (occurrence: None)
  Receive Date: 20120727
  Receipt Date: 20120727
  Transmission Date: 20120928
  Serious: Yes (Life-Threatening, Other)
  Sender: FDA-Public Use
  Company Number: None

PATIENT
  Sex: Male
  Weight: 93.6 kg

DRUGS (2)
  1. CELEXA [Suspect]
     Indication: DEPRESSION
     Dosage: 5-6 WEEKS, PO
     Route: 048
  2. LISINOPRIL [Concomitant]

REACTIONS (2)
  - ALCOHOL USE [None]
  - SUICIDE ATTEMPT [None]
